FAERS Safety Report 7738356-4 (Version None)
Quarter: 2011Q3

REPORT INFORMATION
  Report Type: 
  Country: None (occurrence: None)
  Receive Date: 20110908
  Receipt Date: 20110905
  Transmission Date: 20111222
  Serious: Yes (Other)
  Sender: FDA-Public Use
  Company Number: AU-PFIZER INC-HQ4136710SEP2002

PATIENT
  Age: 57 Year
  Sex: Female
  Weight: 58 kg

DRUGS (2)
  1. CODEINE PHOSPHATE/DOXYLAMINE SUCCINATE/PARACETAMOL [Concomitant]
     Route: 048
  2. EFFEXOR XR [Suspect]
     Indication: DEPRESSION
     Dosage: 150.0 MG, 1X/DAY
     Route: 048
     Dates: start: 19990501

REACTIONS (1)
  - CARDIOMYOPATHY [None]
